FAERS Safety Report 11883231 (Version 1)
Quarter: 2015Q4

REPORT INFORMATION
  Report Type: Spontaneous
  Country: NL (occurrence: NL)
  Receive Date: 20151231
  Receipt Date: 20151231
  Transmission Date: 20160305
  Serious: Yes (Death, Hospitalization, Other)
  Sender: FDA-Public Use
  Company Number: NL-JNJFOC-20151224642

PATIENT

DRUGS (19)
  1. THIORIDAZINE [Suspect]
     Active Substance: THIORIDAZINE
     Indication: AGITATION
     Route: 065
  2. OLANZAPINE. [Suspect]
     Active Substance: OLANZAPINE
     Indication: DEMENTIA
     Route: 065
  3. RISPERIDONE. [Suspect]
     Active Substance: RISPERIDONE
     Indication: DEMENTIA
     Route: 065
  4. HALOPERIDOL. [Suspect]
     Active Substance: HALOPERIDOL
     Indication: AFFECTIVE DISORDER
     Route: 065
  5. QUETIAPINE [Suspect]
     Active Substance: QUETIAPINE
     Indication: DEMENTIA
     Route: 065
  6. THIORIDAZINE [Suspect]
     Active Substance: THIORIDAZINE
     Indication: DEMENTIA
     Route: 065
  7. CLOZAPINE. [Suspect]
     Active Substance: CLOZAPINE
     Indication: AGITATION
     Route: 065
  8. OLANZAPINE. [Suspect]
     Active Substance: OLANZAPINE
     Indication: AGITATION
     Route: 065
  9. RISPERIDONE. [Suspect]
     Active Substance: RISPERIDONE
     Indication: AFFECTIVE DISORDER
     Route: 065
  10. HALOPERIDOL. [Suspect]
     Active Substance: HALOPERIDOL
     Indication: AGITATION
     Route: 065
  11. HALOPERIDOL. [Suspect]
     Active Substance: HALOPERIDOL
     Indication: DEMENTIA
     Route: 065
  12. CLOZAPINE. [Suspect]
     Active Substance: CLOZAPINE
     Indication: AFFECTIVE DISORDER
     Route: 065
  13. DIGOXIN. [Concomitant]
     Active Substance: DIGOXIN
     Route: 065
  14. RISPERIDONE. [Suspect]
     Active Substance: RISPERIDONE
     Indication: AGITATION
     Route: 065
  15. THIORIDAZINE [Suspect]
     Active Substance: THIORIDAZINE
     Indication: AFFECTIVE DISORDER
     Route: 065
  16. CLOZAPINE. [Suspect]
     Active Substance: CLOZAPINE
     Indication: DEMENTIA
     Route: 065
  17. OLANZAPINE. [Suspect]
     Active Substance: OLANZAPINE
     Indication: AFFECTIVE DISORDER
     Route: 065
  18. QUETIAPINE [Suspect]
     Active Substance: QUETIAPINE
     Indication: AGITATION
     Route: 065
  19. QUETIAPINE [Suspect]
     Active Substance: QUETIAPINE
     Indication: AFFECTIVE DISORDER
     Route: 065

REACTIONS (1)
  - Pneumonia [Fatal]
